FAERS Safety Report 8279243-5 (Version None)
Quarter: 2012Q2

REPORT INFORMATION
  Report Type: 
  Country: None (occurrence: None)
  Receive Date: 20120412
  Receipt Date: 20111206
  Transmission Date: 20120825
  Serious: No
  Sender: FDA-Public Use
  Company Number: US-ASTRAZENECA-2011SE74170

PATIENT
  Age: 74 Year
  Sex: Male
  Weight: 77.1 kg

DRUGS (4)
  1. NEXIUM [Suspect]
     Indication: DYSPHAGIA
     Route: 048
  2. FENESTERIDE [Concomitant]
  3. AMLODIPINE BESYLATE [Concomitant]
  4. LISINOPRIL [Concomitant]

REACTIONS (2)
  - WEIGHT DECREASED [None]
  - OFF LABEL USE [None]
